FAERS Safety Report 7336374-1 (Version None)
Quarter: 2011Q1

REPORT INFORMATION
  Report Type: 
  Country: None (occurrence: None)
  Receive Date: 20110307
  Receipt Date: 20110302
  Transmission Date: 20110831
  Serious: Yes (Other)
  Sender: FDA-Public Use
  Company Number: US-PFIZER INC-2010170349

PATIENT
  Sex: Female

DRUGS (3)
  1. CHANTIX [Suspect]
     Indication: SMOKING CESSATION THERAPY
     Dosage: 0.5-1 MG
     Dates: start: 20080306, end: 20090801
  2. METFORMIN [Concomitant]
     Indication: DIABETES MELLITUS
     Dosage: UNK
     Dates: start: 20070101
  3. XANAX [Concomitant]
     Indication: ANXIETY
     Dosage: UNK
     Dates: start: 20050101

REACTIONS (11)
  - SPINAL COLUMN INJURY [None]
  - MENTAL DISORDER [None]
  - JOINT INJURY [None]
  - HEAD INJURY [None]
  - IMPAIRED DRIVING ABILITY [None]
  - DEPRESSION [None]
  - AGGRESSION [None]
  - ANXIETY [None]
  - SUICIDAL IDEATION [None]
  - LOSS OF CONSCIOUSNESS [None]
  - EMOTIONAL DISTRESS [None]
